FAERS Safety Report 14424338 (Version 2)
Quarter: 2018Q3

REPORT INFORMATION
  Report Type: Spontaneous
  Country: US (occurrence: US)
  Receive Date: 20180123
  Receipt Date: 20180906
  Transmission Date: 20181010
  Serious: No
  Sender: FDA-Public Use
  Company Number: US-PFIZER INC-2018026962

PATIENT
  Age: 65 Year
  Sex: Male

DRUGS (1)
  1. IBRANCE [Suspect]
     Active Substance: PALBOCICLIB
     Indication: BREAST CANCER MALE
     Dosage: UNK

REACTIONS (2)
  - Product use issue [Unknown]
  - Neoplasm progression [Unknown]
